FAERS Safety Report 13193181 (Version 1)
Quarter: 2017Q1

REPORT INFORMATION
  Report Type: Report from Study
  Country: US (occurrence: US)
  Receive Date: 20170207
  Receipt Date: 20170207
  Transmission Date: 20170428
  Serious: Yes (Hospitalization)
  Sender: FDA-Public Use
  Company Number: US-009507513-1701USA011253

PATIENT
  Sex: Female

DRUGS (1)
  1. NOXAFIL [Suspect]
     Active Substance: POSACONAZOLE
     Indication: ANTIBIOTIC THERAPY
     Dosage: 100 MG, UNKNOWN
     Route: 048

REACTIONS (3)
  - Drug dose omission [Unknown]
  - Adverse event [Unknown]
  - No adverse event [Unknown]
